FAERS Safety Report 19257692 (Version 1)
Quarter: 2021Q2

REPORT INFORMATION
  Report Type: Spontaneous
  Country: US (occurrence: US)
  Receive Date: 20210513
  Receipt Date: 20210513
  Transmission Date: 20210717
  Serious: Yes (Disabling, Other)
  Sender: FDA-Public Use
  Company Number: None

PATIENT
  Age: 28 Year
  Sex: Female
  Weight: 58.5 kg

DRUGS (1)
  1. LORAZEPAM. [Suspect]
     Active Substance: LORAZEPAM
     Indication: ANXIETY
     Dosage: ?          QUANTITY:60 TABLET(S);?
     Route: 048
     Dates: start: 20210510, end: 20210512

REACTIONS (8)
  - Hot flush [None]
  - Cardiovascular disorder [None]
  - Anxiety [None]
  - Confusional state [None]
  - Heart rate increased [None]
  - Manufacturing issue [None]
  - Insomnia [None]
  - Nasopharyngitis [None]

NARRATIVE: CASE EVENT DATE: 20210510
